FAERS Safety Report 5128045-7 (Version None)
Quarter: 2006Q4

REPORT INFORMATION
  Report Type: 
  Country: None (occurrence: None)
  Receive Date: 20061010
  Receipt Date: 20060925
  Transmission Date: 20070319
  Serious: Yes (Other)
  Sender: FDA-Public Use
  Company Number: 2006117814

PATIENT
  Age: 50 Year
  Sex: 0

DRUGS (2)
  1. LYRICA [Suspect]
  2. ANTIHYPERTENSIVES [Concomitant]

REACTIONS (2)
  - HYPERTENSION [None]
  - TACHYCARDIA [None]
